FAERS Safety Report 9128185 (Version 1)
Quarter: 2013Q1

REPORT INFORMATION
  Report Type: Spontaneous
  Country: TR (occurrence: TR)
  Receive Date: 20130228
  Receipt Date: 20130228
  Transmission Date: 20140127
  Serious: Yes (Hospitalization)
  Sender: FDA-Public Use
  Company Number: TR-SANOFI-AVENTIS-2013SA017970

PATIENT
  Age: 52 Year
  Sex: Male

DRUGS (5)
  1. DOCETAXEL [Suspect]
     Indication: LARYNGEAL CANCER
     Route: 065
  2. FLUOROURACIL [Suspect]
     Indication: LARYNGEAL CANCER
     Route: 065
  3. CISPLATIN [Suspect]
     Indication: LARYNGEAL CANCER
     Route: 065
  4. METOCLOPRAMIDE [Suspect]
     Indication: NAUSEA
     Route: 048
  5. METOCLOPRAMIDE [Suspect]
     Indication: VOMITING
     Route: 048

REACTIONS (13)
  - Parkinsonism [Recovered/Resolved]
  - Tremor [Recovered/Resolved]
  - Dysarthria [Recovered/Resolved]
  - Masked facies [Recovered/Resolved]
  - Restlessness [Recovered/Resolved]
  - Irritability [Recovered/Resolved]
  - Mobility decreased [Recovered/Resolved]
  - Salivary hypersecretion [Recovered/Resolved]
  - Bradykinesia [Recovered/Resolved]
  - Parkinsonian gait [Recovered/Resolved]
  - Akathisia [Recovered/Resolved]
  - Nausea [Unknown]
  - Vomiting [Unknown]
